FAERS Safety Report 4650844-6 (Version None)
Quarter: 2005Q2

REPORT INFORMATION
  Report Type: 
  Country: None (occurrence: None)
  Receive Date: 20050503
  Receipt Date: 20050421
  Transmission Date: 20051028
  Serious: Yes (Hospitalization)
  Sender: FDA-Public Use
  Company Number: CH-SANOFI-SYNTHELABO-A01200502721

PATIENT
  Age: 73 Year
  Sex: Male

DRUGS (8)
  1. XATRAL UNO [Suspect]
     Indication: BENIGN PROSTATIC HYPERPLASIA
     Route: 048
     Dates: end: 20041020
  2. LASIX [Suspect]
     Indication: DRUG USE FOR UNKNOWN INDICATION
     Dosage: 40 MG
     Route: 048
     Dates: end: 20041020
  3. LOPRESSOR RETARD [Suspect]
     Indication: DRUG USE FOR UNKNOWN INDICATION
     Dosage: 100 MG
     Route: 048
     Dates: end: 20041020
  4. ISOPTIN RETARD [Suspect]
     Indication: DRUG USE FOR UNKNOWN INDICATION
     Dosage: 120 MG
     Route: 048
     Dates: end: 20041020
  5. FLUOXETINE [Suspect]
     Indication: DRUG USE FOR UNKNOWN INDICATION
     Dosage: 20 MG
     Route: 048
     Dates: end: 20041020
  6. ZYLORIC [Concomitant]
     Indication: DRUG USE FOR UNKNOWN INDICATION
     Dosage: 300 MG
     Route: 048
     Dates: end: 20041020
  7. SINTROM [Concomitant]
     Indication: DRUG USE FOR UNKNOWN INDICATION
     Route: 048
  8. SEROPRAM [Concomitant]
     Indication: DRUG USE FOR UNKNOWN INDICATION
     Dosage: 20 MG
     Route: 048
     Dates: end: 20041020

REACTIONS (7)
  - ATRIAL FIBRILLATION [None]
  - BRADYCARDIA [None]
  - CARDIOMEGALY [None]
  - COLD SWEAT [None]
  - DIZZINESS [None]
  - HYPOTENSION [None]
  - SYNCOPE [None]
